FAERS Safety Report 13569886 (Version 1)
Quarter: 2017Q2

REPORT INFORMATION
  Report Type: Spontaneous
  Country: TR (occurrence: TR)
  Receive Date: 20170522
  Receipt Date: 20170522
  Transmission Date: 20170830
  Serious: Yes (Other)
  Sender: FDA-Public Use
  Company Number: PHHY2017TR074140

PATIENT
  Age: 13 Year
  Sex: Male

DRUGS (1)
  1. METHYLPHENIDATE HYDROCHLORIDE. [Suspect]
     Active Substance: METHYLPHENIDATE HYDROCHLORIDE
     Indication: ATTENTION DEFICIT/HYPERACTIVITY DISORDER
     Dosage: 10 MG, QD
     Route: 065

REACTIONS (1)
  - Thrombocytopenia [Recovered/Resolved]
